FAERS Safety Report 17928355 (Version 6)
Quarter: 2021Q4

REPORT INFORMATION
  Report Type: Spontaneous
  Country: US (occurrence: US)
  Receive Date: 20200623
  Receipt Date: 20211203
  Transmission Date: 20220303
  Serious: Yes (Other)
  Sender: FDA-Public Use
  Company Number: US-GILEAD-2020-0474539

PATIENT
  Age: 52 Year
  Sex: Male
  Weight: 75.296 kg

DRUGS (44)
  1. TRUVADA [Suspect]
     Active Substance: EMTRICITABINE\TENOFOVIR DISOPROXIL FUMARATE
     Indication: HIV infection
     Dosage: UNK
     Route: 048
     Dates: start: 200501, end: 2017
  2. TRUVADA [Suspect]
     Active Substance: EMTRICITABINE\TENOFOVIR DISOPROXIL FUMARATE
     Dosage: UNK
     Route: 065
     Dates: start: 2016, end: 2018
  3. TRUVADA [Suspect]
     Active Substance: EMTRICITABINE\TENOFOVIR DISOPROXIL FUMARATE
     Dosage: UNK
     Route: 065
     Dates: start: 20150514, end: 20170626
  4. DESCOVY [Suspect]
     Active Substance: EMTRICITABINE\TENOFOVIR ALAFENAMIDE FUMARATE
     Indication: HIV infection
     Dosage: UNK
     Route: 065
     Dates: start: 20171019, end: 20210311
  5. BIKTARVY [Concomitant]
     Active Substance: BICTEGRAVIR SODIUM\EMTRICITABINE\TENOFOVIR ALAFENAMIDE FUMARATE
  6. ACETAMINOPHEN [Concomitant]
     Active Substance: ACETAMINOPHEN
  7. ACYCLOVIR [Concomitant]
     Active Substance: ACYCLOVIR
  8. ALDACTONE [Concomitant]
     Active Substance: SPIRONOLACTONE
  9. TOBRAMYCIN [Concomitant]
     Active Substance: TOBRAMYCIN
  10. AMOXICILLIN [Concomitant]
     Active Substance: AMOXICILLIN
  11. COZAAR [Concomitant]
     Active Substance: LOSARTAN POTASSIUM
  12. BENICAR [Concomitant]
     Active Substance: OLMESARTAN MEDOXOMIL
  13. AVAPRO [Concomitant]
     Active Substance: IRBESARTAN
  14. ATACAND [Concomitant]
     Active Substance: CANDESARTAN CILEXETIL
  15. DIOVAN [Concomitant]
     Active Substance: VALSARTAN
  16. CAPTOPRIL [Concomitant]
     Active Substance: CAPTOPRIL
  17. VASOTEC [Concomitant]
     Active Substance: ENALAPRIL MALEATE
  18. ZESTRIL [Concomitant]
     Active Substance: LISINOPRIL
  19. ACCUPRIL [Concomitant]
     Active Substance: QUINAPRIL HYDROCHLORIDE
  20. ASPIRIN [Concomitant]
     Active Substance: ASPIRIN
  21. ATORVASTATIN [Concomitant]
     Active Substance: ATORVASTATIN
  22. BACTRIM [Concomitant]
     Active Substance: SULFAMETHOXAZOLE\TRIMETHOPRIM
  23. XANAX [Concomitant]
     Active Substance: ALPRAZOLAM
  24. VALIUM [Concomitant]
     Active Substance: DIAZEPAM
  25. ATIVAN [Concomitant]
     Active Substance: LORAZEPAM
  26. BUMEX [Concomitant]
     Active Substance: BUMETANIDE
  27. CIMETIDINE [Concomitant]
     Active Substance: CIMETIDINE
  28. CORTISONE [Concomitant]
     Active Substance: CORTISONE
  29. CRESTOR [Concomitant]
     Active Substance: ROSUVASTATIN CALCIUM
  30. DEXAMETHASONE [Concomitant]
     Active Substance: DEXAMETHASONE
  31. FAMOTIDINE [Concomitant]
     Active Substance: FAMOTIDINE
  32. HALOPERIDOL [Concomitant]
     Active Substance: HALOPERIDOL
  33. HEPARIN [Concomitant]
     Active Substance: HEPARIN SODIUM
  34. LITHIUM [Concomitant]
     Active Substance: LITHIUM
  35. IBUPROFEN [Concomitant]
     Active Substance: IBUPROFEN
  36. NAPROXEN [Concomitant]
     Active Substance: NAPROXEN
  37. DICLOFENAC [Concomitant]
     Active Substance: DICLOFENAC
  38. OMEPRAZOLE [Concomitant]
     Active Substance: OMEPRAZOLE
  39. PANTOPRAZOLE [Concomitant]
     Active Substance: PANTOPRAZOLE
  40. RANITIDINE [Concomitant]
     Active Substance: RANITIDINE
  41. PROZAC [Concomitant]
     Active Substance: FLUOXETINE HYDROCHLORIDE
  42. PAXIL [Concomitant]
     Active Substance: PAROXETINE HYDROCHLORIDE
  43. ZOLOFT [Concomitant]
     Active Substance: SERTRALINE HYDROCHLORIDE
  44. PREZISTA [Concomitant]
     Active Substance: DARUNAVIR ETHANOLATE

REACTIONS (17)
  - Osteoporosis [Not Recovered/Not Resolved]
  - Osteoporosis [Not Recovered/Not Resolved]
  - Multiple fractures [Not Recovered/Not Resolved]
  - End stage renal disease [Not Recovered/Not Resolved]
  - Chronic kidney disease [Not Recovered/Not Resolved]
  - Chronic kidney disease [Unknown]
  - Osteonecrosis [Not Recovered/Not Resolved]
  - Acute kidney injury [Not Recovered/Not Resolved]
  - Osteopenia [Unknown]
  - Bone density decreased [Unknown]
  - Tooth loss [Not Recovered/Not Resolved]
  - Emotional distress [Unknown]
  - Pain [Unknown]
  - Renal impairment [Not Recovered/Not Resolved]
  - Bone loss [Not Recovered/Not Resolved]
  - Hypertension [Recovered/Resolved]
  - Hypercholesterolaemia [Recovered/Resolved]

NARRATIVE: CASE EVENT DATE: 20150101
